FAERS Safety Report 11315927 (Version 1)
Quarter: 2015Q3

REPORT INFORMATION
  Report Type: Spontaneous
  Country: US (occurrence: None)
  Receive Date: 20150724
  Receipt Date: 20150724
  Transmission Date: 20151125
  Serious: Yes (Hospitalization)
  Sender: FDA-Public Use
  Company Number: 2014US-85163

PATIENT
  Age: 16 Year
  Sex: Female

DRUGS (3)
  1. LEVETIRACETAM. [Suspect]
     Active Substance: LEVETIRACETAM
     Indication: PRODUCT USED FOR UNKNOWN INDICATION
     Route: 048
  2. LACOSAMIDE [Suspect]
     Active Substance: LACOSAMIDE
     Indication: PRODUCT USED FOR UNKNOWN INDICATION
     Route: 048
  3. CYCLOBENZAPRINE [Suspect]
     Active Substance: CYCLOBENZAPRINE
     Indication: PRODUCT USED FOR UNKNOWN INDICATION
     Route: 048

REACTIONS (11)
  - QRS axis abnormal [None]
  - Pneumonia [None]
  - Self injurious behaviour [None]
  - Electrocardiogram QRS complex prolonged [None]
  - Ventricular fibrillation [None]
  - Metabolic acidosis [None]
  - Intentional overdose [None]
  - Cardiac arrest [None]
  - Respiratory acidosis [None]
  - Sinus tachycardia [None]
  - Generalised tonic-clonic seizure [None]
